FAERS Safety Report 16361544 (Version 8)
Quarter: 2021Q3

REPORT INFORMATION
  Report Type: Spontaneous
  Country: US (occurrence: US)
  Receive Date: 20190528
  Receipt Date: 20210729
  Transmission Date: 20211014
  Serious: Yes (Hospitalization, Other)
  Sender: FDA-Public Use
  Company Number: US-PFIZER INC-2019220876

PATIENT
  Age: 75 Year
  Sex: Female
  Weight: 81.65 kg

DRUGS (3)
  1. DILANTIN [Suspect]
     Active Substance: PHENYTOIN
     Dosage: 100 MG, UNKNOWN FREQUENCY
  2. DILANTIN [Suspect]
     Active Substance: PHENYTOIN
     Indication: SEIZURE
     Dosage: 100 MG, TWICE A DAY
  3. DILANTIN [Suspect]
     Active Substance: PHENYTOIN
     Indication: EPILEPSY
     Dosage: 200 MG, DAILY (100MG 2 AT NIGHT BY MOUTH)
     Route: 048
     Dates: start: 1975

REACTIONS (13)
  - Product dose omission issue [Unknown]
  - Somnolence [Unknown]
  - Body height decreased [Unknown]
  - Condition aggravated [Unknown]
  - Headache [Unknown]
  - Dizziness [Unknown]
  - Off label use [Unknown]
  - Balance disorder [Unknown]
  - Fatigue [Unknown]
  - Amnesia [Unknown]
  - Seizure [Unknown]
  - Product dispensing error [Unknown]
  - Therapeutic product effect incomplete [Unknown]
